FAERS Safety Report 20947319 (Version 1)
Quarter: 2022Q2

REPORT INFORMATION
  Report Type: Report from Study
  Country: US (occurrence: US)
  Receive Date: 20220610
  Receipt Date: 20220610
  Transmission Date: 20220721
  Serious: Yes (Other)
  Sender: FDA-Public Use
  Company Number: US-GILEAD-2022-0585058

PATIENT
  Age: 59 Year
  Sex: Female

DRUGS (1)
  1. EMTRICITABINE\TENOFOVIR [Suspect]
     Active Substance: EMTRICITABINE\TENOFOVIR
     Indication: HIV infection
     Dosage: UNK
     Route: 065

REACTIONS (6)
  - Osteoporosis [Unknown]
  - Arthritis [Unknown]
  - Back disorder [Unknown]
  - Gastrointestinal disorder [Unknown]
  - Sinus disorder [Unknown]
  - Hypersensitivity [Unknown]
